FAERS Safety Report 16363237 (Version 1)
Quarter: 2019Q2

REPORT INFORMATION
  Report Type: Spontaneous
  Country: CN (occurrence: CN)
  Receive Date: 20190528
  Receipt Date: 20190528
  Transmission Date: 20190711
  Serious: No
  Sender: FDA-Public Use
  Company Number: CN-B. BRAUN MEDICAL INC.-2067491

PATIENT
  Age: 36 Year
  Sex: Female
  Weight: 74 kg

DRUGS (1)
  1. NUTRILIPID I.V. FAT EMULSION [Suspect]
     Active Substance: SOYBEAN OIL
     Indication: NUTRITIONAL SUPPLEMENTATION
     Route: 041
     Dates: start: 20190415, end: 20190415

REACTIONS (3)
  - Chest discomfort [Recovered/Resolved]
  - Hyperhidrosis [None]
  - Mental impairment [Recovered/Resolved]
